FAERS Safety Report 7001036-7 (Version None)
Quarter: 2010Q3

REPORT INFORMATION
  Report Type: 
  Country: None (occurrence: None)
  Receive Date: 20100920
  Receipt Date: 20070822
  Transmission Date: 20110219
  Serious: Yes (Hospitalization, Other)
  Sender: FDA-Public Use
  Company Number: US-ASTRAZENECA-2006UW06084

PATIENT
  Age: 9200 Day
  Sex: Male

DRUGS (18)
  1. SEROQUEL [Suspect]
     Indication: DEPRESSION
     Dosage: 25MG-100MG
     Route: 048
     Dates: start: 20040502, end: 20041208
  2. SEROQUEL [Suspect]
     Indication: ANXIETY
     Dosage: 25MG-100MG
     Route: 048
     Dates: start: 20040502, end: 20041208
  3. SEROQUEL [Suspect]
     Indication: INSOMNIA
     Dosage: 25MG-100MG
     Route: 048
     Dates: start: 20040502, end: 20041208
  4. SEROQUEL [Suspect]
     Dosage: 25-600 MG
     Route: 048
     Dates: start: 20040602, end: 20041211
  5. SEROQUEL [Suspect]
     Dosage: 25-600 MG
     Route: 048
     Dates: start: 20040602, end: 20041211
  6. SEROQUEL [Suspect]
     Dosage: 25-600 MG
     Route: 048
     Dates: start: 20040602, end: 20041211
  7. GEODON [Concomitant]
     Dates: start: 20060101, end: 20070910
  8. RISPERDAL [Concomitant]
     Dosage: 2 MG, BID
     Dates: start: 20041101
  9. REMERON [Concomitant]
     Dosage: 30MG-60MG TWO TIMES A DAY
     Dates: start: 20030110
  10. ABILIFY (ARIPIPARAZOLE) [Concomitant]
     Dates: start: 20070901
  11. ZYPREXA /SYMBYAX (OLANZAPINE) [Concomitant]
     Dates: start: 20030319, end: 20030421
  12. ZOLOFT [Concomitant]
     Indication: DEPRESSION
     Dosage: 25-200 MG
     Dates: start: 20030101
  13. ZOLOFT [Concomitant]
     Indication: SLEEP DISORDER
     Dosage: 25-200 MG
     Dates: start: 20030101
  14. ZOLOFT [Concomitant]
     Indication: ANXIETY
     Dosage: 25-200 MG
     Dates: start: 20030101
  15. REMERON SOLTAB [Concomitant]
     Indication: DEPRESSION
     Dosage: 15-45 GM
     Dates: start: 20030101
  16. REMERON SOLTAB [Concomitant]
     Indication: SLEEP DISORDER
     Dosage: 15-45 GM
     Dates: start: 20030101
  17. REMERON SOLTAB [Concomitant]
     Indication: ANXIETY
     Dosage: 15-45 GM
     Dates: start: 20030101
  18. WELLBUTRIN XL [Concomitant]
     Dates: start: 20041101

REACTIONS (3)
  - DIABETES MELLITUS [None]
  - DRUG INEFFECTIVE [None]
  - PANCREATITIS [None]
